FAERS Safety Report 14211540 (Version 1)
Quarter: 2017Q4

REPORT INFORMATION
  Report Type: Spontaneous
  Country: US (occurrence: US)
  Receive Date: 20171121
  Receipt Date: 20171121
  Transmission Date: 20180321
  Serious: Yes (Other)
  Sender: FDA-Public Use
  Company Number: US-MYLANLABS-2017M1073511

PATIENT
  Age: 25 Year
  Sex: Female

DRUGS (6)
  1. BUPIVACAINE. [Concomitant]
     Active Substance: BUPIVACAINE
     Indication: SPINAL ANAESTHESIA
     Dosage: 15MG
     Route: 037
  2. BUPIVACAINE. [Concomitant]
     Active Substance: BUPIVACAINE
     Indication: FEMALE STERILISATION
  3. SUFENTANIL [Concomitant]
     Active Substance: SUFENTANIL
     Indication: FEMALE STERILISATION
  4. BUPRENORPHINE. [Suspect]
     Active Substance: BUPRENORPHINE
     Indication: PRODUCT USED FOR UNKNOWN INDICATION
     Dosage: 4 MG/DAY
     Route: 065
  5. BUPRENORPHINE. [Suspect]
     Active Substance: BUPRENORPHINE
     Indication: FEMALE STERILISATION
  6. SUFENTANIL [Concomitant]
     Active Substance: SUFENTANIL
     Indication: SPINAL ANAESTHESIA
     Dosage: 10 MICROGRAM
     Route: 037

REACTIONS (3)
  - Hyperaesthesia [Recovering/Resolving]
  - Maternal use of illicit drugs [Unknown]
  - Drug abuse [Unknown]
